FAERS Safety Report 6610740-1 (Version None)
Quarter: 2010Q1

REPORT INFORMATION
  Report Type: 
  Country: None (occurrence: None)
  Receive Date: 20100302
  Receipt Date: 20100219
  Transmission Date: 20100710
  Serious: Yes (Other)
  Sender: FDA-Public Use
  Company Number: B0594900A

PATIENT
  Sex: Male
  Weight: 68 kg

DRUGS (10)
  1. AVODART [Suspect]
     Indication: BENIGN PROSTATIC HYPERPLASIA
     Dosage: .5MG PER DAY
     Route: 048
     Dates: start: 20090827
  2. CLOPIDOGREL [Concomitant]
  3. SINGULAIR [Concomitant]
  4. THEOPHYLLINE [Concomitant]
  5. FELODIPINE [Concomitant]
     Dosage: 120MG PER DAY
     Route: 065
  6. METFORMIN HYDROCHLORIDE [Concomitant]
  7. ALFUZOSIN HCL [Concomitant]
  8. CETIRIZINE HCL [Concomitant]
  9. ATORVASTATIN CALCIUM [Concomitant]
  10. DILTIAZEM HCL [Concomitant]

REACTIONS (2)
  - ARRHYTHMIA SUPRAVENTRICULAR [None]
  - CIRCULATORY COLLAPSE [None]
